FAERS Safety Report 7025656-9 (Version None)
Quarter: 2010Q4

REPORT INFORMATION
  Report Type: 
  Country: None (occurrence: None)
  Receive Date: 20101004
  Receipt Date: 20100323
  Transmission Date: 20110411
  Serious: Yes (Other)
  Sender: FDA-Public Use
  Company Number: US-BAYER-201014045NA

PATIENT
  Age: 24 Year
  Sex: Female
  Weight: 82 kg

DRUGS (13)
  1. YAZ [Suspect]
     Indication: PRODUCT USED FOR UNKNOWN INDICATION
     Route: 048
     Dates: start: 20070201, end: 20090401
  2. VENTOLIN DS [Concomitant]
     Route: 065
     Dates: start: 20090101
  3. PRENATAL PLUS [Concomitant]
     Route: 065
     Dates: start: 20090401
  4. HYDROCORTISONE CREAM [Concomitant]
     Route: 065
     Dates: start: 20090501
  5. SINGULAIR [Concomitant]
     Route: 065
     Dates: start: 20080201, end: 20081201
  6. SINGULAIR [Concomitant]
     Route: 065
     Dates: start: 20090101, end: 20091001
  7. MUCINEX D [Concomitant]
     Route: 065
     Dates: start: 20090101
  8. DICLOXACILLIN [Concomitant]
     Route: 065
     Dates: start: 20090501
  9. PROMETHAZINE [Concomitant]
     Route: 065
     Dates: start: 20090501
  10. ALBUTEROL INHALER [Concomitant]
     Route: 065
     Dates: start: 20040101
  11. VITAMIN AND MINERAL PRENATAL SUPPLEMENT W/ FOLIC ACID CAP [Concomitant]
     Route: 065
     Dates: start: 20060101, end: 20060101
  12. VITAMIN AND MINERAL PRENATAL SUPPLEMENT W/ FOLIC ACID CAP [Concomitant]
     Route: 065
     Dates: start: 20090101, end: 20090101
  13. TYLENOL [Concomitant]
     Indication: HEADACHE
     Route: 065

REACTIONS (7)
  - ABDOMINAL PAIN [None]
  - ABDOMINAL PAIN UPPER [None]
  - CHOLELITHIASIS [None]
  - CONSTIPATION [None]
  - DIARRHOEA [None]
  - NAUSEA [None]
  - VOMITING [None]
